FAERS Safety Report 7455618 (Version 7)
Quarter: 2013Q3

REPORT INFORMATION
  Report Type: Report from Study
  Country: JP (occurrence: JP)
  Receive Date: 20100707
  Receipt Date: 20130802
  Transmission Date: 20140515
  Serious: Yes (Death, Life-Threatening, Hospitalization, Other)
  Sender: FDA-Public Use
  Company Number: JP-BAYER-201013295BYL

PATIENT
  Age: 81 Year
  Sex: Male
  Weight: 45.81 kg

DRUGS (17)
  1. NEXAVAR [Suspect]
     Indication: HEPATOCELLULAR CARCINOMA
     Dosage: 400 MG, QD
     Route: 048
     Dates: start: 20100610, end: 20100622
  2. NEXAVAR [Suspect]
     Indication: HEPATOCELLULAR CARCINOMA
     Dosage: 400 MG, QOD
     Route: 048
     Dates: start: 20100624, end: 20100625
  3. URSO [Concomitant]
     Dosage: DAILY DOSE 600 MG
     Route: 048
  4. NU-LOTAN [Concomitant]
     Dosage: DAILY DOSE 50 MG
     Route: 048
  5. MAGMITT [Concomitant]
     Dosage: DAILY DOSE 990 MG
     Route: 048
  6. PANTOSIN [Concomitant]
     Dosage: DAILY DOSE 3 G
     Route: 048
  7. HIRUDOID [Concomitant]
     Indication: DRUG TOXICITY PROPHYLAXIS
     Dosage: UNK
     Route: 061
     Dates: start: 20100524, end: 20100625
  8. UREPEARL [Concomitant]
     Indication: DRUG TOXICITY PROPHYLAXIS
     Dosage: UNK
     Route: 061
     Dates: start: 20100610, end: 20100625
  9. METILON [Concomitant]
     Dosage: DAILY DOSE .5 DF
     Route: 030
     Dates: start: 20100614, end: 20100615
  10. METILON [Concomitant]
     Dosage: DAILY DOSE .5 DF
     Route: 030
     Dates: start: 20100620, end: 20100620
  11. METILON [Concomitant]
     Dosage: DAILY DOSE 1 DF
     Route: 030
     Dates: start: 20100621, end: 20100625
  12. METILON [Concomitant]
     Dosage: DAILY DOSE .5 DF
     Route: 030
     Dates: start: 20100709, end: 20100709
  13. METILON [Concomitant]
     Dosage: DAILY DOSE 1 DF
     Route: 030
     Dates: start: 20100717, end: 20100717
  14. METILON [Concomitant]
     Dosage: DAILY DOSE 1 DF
     Route: 030
     Dates: start: 20100720, end: 20100720
  15. ANTIANAEMIC PREPARATIONS [Concomitant]
     Dosage: DAILY DOSE 1 DF
     Route: 042
     Dates: start: 20100628, end: 20100721
  16. AMINOLEBAN [Concomitant]
     Dosage: DAILY DOSE 200 ML
     Route: 042
     Dates: start: 20100705, end: 20100721
  17. OTHER ANTIANAEMIC PREPARATIONS [Concomitant]
     Dosage: DAILY DOSE 1 DF
     Route: 042
     Dates: start: 20100628, end: 20100721

REACTIONS (16)
  - Hepatocellular carcinoma [Fatal]
  - Disseminated intravascular coagulation [Recovered/Resolved]
  - Cardiac failure acute [Recovered/Resolved]
  - Cardiac failure acute [Recovered/Resolved]
  - Hepatic function abnormal [Recovered/Resolved]
  - Platelet count decreased [Recovered/Resolved]
  - Ascites [Recovered/Resolved]
  - Pyrexia [Recovered/Resolved]
  - Anaemia [Recovered/Resolved]
  - Lipase increased [Unknown]
  - Amylase increased [Recovered/Resolved]
  - Ammonia increased [Recovered/Resolved]
  - Hyponatraemia [Recovered/Resolved]
  - Neutrophil count increased [Recovered/Resolved]
  - Palmar-plantar erythrodysaesthesia syndrome [Recovered/Resolved]
  - Dysphonia [Recovered/Resolved]
